FAERS Safety Report 7905727-2 (Version None)
Quarter: 2011Q4

REPORT INFORMATION
  Report Type: 
  Country: None (occurrence: None)
  Receive Date: 20111108
  Receipt Date: 20111025
  Transmission Date: 20120403
  Serious: Yes (Hospitalization)
  Sender: FDA-Public Use
  Company Number: 2011MA015702

PATIENT
  Age: 68 Year
  Sex: Male

DRUGS (6)
  1. GLIMIPRIDE [Concomitant]
  2. METFORMIN HYDROCHLORIDE [Suspect]
  3. LISINOPRIL [Concomitant]
  4. METOPROLOL TARTRATE [Concomitant]
  5. ATORVASTATIN [Concomitant]
  6. WARFARIN SODIUM [Concomitant]

REACTIONS (2)
  - HEART RATE IRREGULAR [None]
  - ATRIAL FIBRILLATION [None]
